FAERS Safety Report 8537137-1 (Version None)
Quarter: 2012Q3

REPORT INFORMATION
  Report Type: 
  Country: None (occurrence: None)
  Receive Date: 20120725
  Receipt Date: 20120529
  Transmission Date: 20120928
  Serious: Yes (Hospitalization, Other)
  Sender: FDA-Public Use
  Company Number: ZA-ASTRAZENECA-2012SE44679

PATIENT
  Age: 66 Year
  Sex: Female

DRUGS (7)
  1. CRESTOR [Suspect]
     Indication: HYPERCHOLESTEROLAEMIA
     Route: 048
     Dates: start: 20070101
  2. CRESTOR [Suspect]
     Route: 048
     Dates: start: 20120501, end: 20120529
  3. PLAVIX [Concomitant]
  4. HOMEOPATHIC MEDICATION [Concomitant]
     Indication: BLOOD CHOLESTEROL
  5. EZETIMIBE [Concomitant]
  6. CRESTOR [Suspect]
     Route: 048
     Dates: start: 20120501, end: 20120501
  7. Q10 [Concomitant]

REACTIONS (5)
  - MYALGIA [None]
  - DRUG DOSE OMISSION [None]
  - CAROTID ARTERY OCCLUSION [None]
  - DIARRHOEA [None]
  - CORONARY ARTERY OCCLUSION [None]
